FAERS Safety Report 4354110-8 (Version None)
Quarter: 2004Q2

REPORT INFORMATION
  Report Type: 
  Country: None (occurrence: None)
  Receive Date: 20040430
  Receipt Date: 20040419
  Transmission Date: 20050107
  Serious: Yes (Life-Threatening, Hospitalization)
  Sender: FDA-Public Use
  Company Number: 2004-BP-02988BP

PATIENT
  Age: 66 Year
  Sex: Male

DRUGS (8)
  1. MICARDIS [Suspect]
     Indication: MYOCARDIAL INFARCTION
     Dosage: PO
     Route: 048
     Dates: start: 20021113
  2. MICARDIS [Suspect]
     Indication: PROPHYLAXIS
     Dosage: PO
     Route: 048
     Dates: start: 20021113
  3. RAMIPRIL [Suspect]
     Indication: PROPHYLAXIS
     Dosage: PO
     Route: 048
     Dates: start: 20021113
  4. METFORMIN HCL [Suspect]
  5. AMLODIPINE [Concomitant]
  6. ATENOLOL [Concomitant]
  7. TRAMADOL HCL [Concomitant]
  8. FUROSEMIDE [Concomitant]

REACTIONS (2)
  - DYSPNOEA [None]
  - RENAL TUBULAR ACIDOSIS [None]
